FAERS Safety Report 19327855 (Version 2)
Quarter: 2021Q3

REPORT INFORMATION
  Report Type: Report from Study
  Country: None (occurrence: AU)
  Receive Date: 20210528
  Receipt Date: 20210726
  Transmission Date: 20211014
  Serious: Yes (Death, Hospitalization)
  Sender: FDA-Public Use
  Company Number: AU-ABBVIE-21P-008-3867454-00

PATIENT
  Age: 77 Year
  Sex: Male
  Weight: 80 kg

DRUGS (16)
  1. VENETOCLAX. [Suspect]
     Active Substance: VENETOCLAX
     Indication: MYELODYSPLASTIC SYNDROME
     Dosage: FOR 14 DAYS
     Route: 048
     Dates: start: 20190218, end: 20190319
  2. CHLORVESCENT [Concomitant]
     Active Substance: POTASSIUM CHLORIDE
     Indication: HYPOKALAEMIA
     Route: 048
     Dates: start: 20200902
  3. ALLOPURINOL. [Concomitant]
     Active Substance: ALLOPURINOL
     Indication: PROPHYLAXIS
     Route: 048
     Dates: start: 20190217, end: 20190219
  4. SLOW K [Concomitant]
     Active Substance: POTASSIUM CHLORIDE
     Indication: HYPOKALAEMIA
     Route: 048
     Dates: start: 20200918
  5. VENETOCLAX. [Suspect]
     Active Substance: VENETOCLAX
     Dosage: FOR 14 DAYS
     Route: 048
     Dates: start: 20190827, end: 20200315
  6. VENETOCLAX. [Suspect]
     Active Substance: VENETOCLAX
     Dosage: FOR 14 DAYS
     Route: 048
     Dates: start: 20200812, end: 20201227
  7. CHLORVESCENT [Concomitant]
     Active Substance: POTASSIUM CHLORIDE
     Route: 048
     Dates: start: 20200905
  8. TRANEXAMIC ACID. [Concomitant]
     Active Substance: TRANEXAMIC ACID
     Indication: HAEMORRHAGE PROPHYLAXIS
     Route: 048
     Dates: start: 20200916
  9. AZACITIDINE. [Suspect]
     Active Substance: AZACITIDINE
     Indication: MYELODYSPLASTIC SYNDROME
     Dosage: 7 OUT OF 9 DAYS
     Route: 058
     Dates: start: 20190218, end: 20190723
  10. AZACITIDINE. [Suspect]
     Active Substance: AZACITIDINE
     Dosage: 7 OUT OF 9 DAYS
     Route: 058
     Dates: start: 20190826, end: 20200110
  11. AZACITIDINE. [Suspect]
     Active Substance: AZACITIDINE
     Dosage: 7 OUT OF 9 DAYS
     Route: 058
     Dates: start: 20200302, end: 20201222
  12. VALACICLOVIR [Concomitant]
     Active Substance: VALACYCLOVIR HYDROCHLORIDE
     Indication: ANTIVIRAL PROPHYLAXIS
     Route: 048
     Dates: start: 20190522
  13. VENETOCLAX. [Suspect]
     Active Substance: VENETOCLAX
     Dosage: FOR 14 DAYS
     Route: 048
     Dates: start: 20190320, end: 20190826
  14. NORMAL SALINE [Concomitant]
     Active Substance: SODIUM CHLORIDE
     Indication: PROPHYLAXIS
     Route: 042
     Dates: start: 20190218, end: 20190220
  15. POSACONAZOLE [Concomitant]
     Active Substance: POSACONAZOLE
     Indication: ANTIFUNGAL PROPHYLAXIS
     Route: 048
     Dates: start: 20200812
  16. FRUSEMIDE [Concomitant]
     Active Substance: FUROSEMIDE
     Indication: ACUTE KIDNEY INJURY
     Route: 042
     Dates: start: 20210421, end: 20210517

REACTIONS (2)
  - Sepsis [Fatal]
  - Febrile neutropenia [Recovered/Resolved]

NARRATIVE: CASE EVENT DATE: 20210418
